FAERS Safety Report 4360197-9 (Version None)
Quarter: 2004Q2

REPORT INFORMATION
  Report Type: 
  Country: None (occurrence: None)
  Receive Date: 20040519
  Receipt Date: 20040513
  Transmission Date: 20050107
  Serious: Yes (Other)
  Sender: FDA-Public Use
  Company Number: US-BRISTOL-MYERS SQUIBB COMPANY-12585907

PATIENT
  Age: 70 Year
  Sex: Female
  Weight: 81 kg

DRUGS (5)
  1. GLUCOPHAGE [Suspect]
     Indication: DIABETES MELLITUS
     Dosage: THERAPY FROM:  ^YEARS AGO^
     Route: 048
     Dates: end: 20040512
  2. INSULIN [Concomitant]
  3. ACTOS [Concomitant]
  4. BLOOD PRESSURE PILL [Concomitant]
  5. VIOXX [Concomitant]

REACTIONS (5)
  - ABDOMINAL PAIN [None]
  - BLOOD GLUCOSE INCREASED [None]
  - BLOOD PRESSURE INCREASED [None]
  - DIZZINESS [None]
  - RENAL DISORDER [None]
